FAERS Safety Report 4442877-X (Version None)
Quarter: 2004Q3

REPORT INFORMATION
  Report Type: 
  Country: None (occurrence: None)
  Receive Date: 20040907
  Receipt Date: 20040907
  Transmission Date: 20050211
  Serious: No
  Sender: FDA-Public Use
  Company Number: None

PATIENT
  Age: 60 Year
  Sex: Male
  Weight: 94.3482 kg

DRUGS (1)
  1. METFORMIN HCL [Suspect]
     Dosage: 500 MG PO QD
     Route: 048
     Dates: start: 20040305, end: 20040614

REACTIONS (1)
  - LACTIC ACIDOSIS [None]
